FAERS Safety Report 6694367-1 (Version None)
Quarter: 2010Q2

REPORT INFORMATION
  Report Type: 
  Country: None (occurrence: None)
  Receive Date: 20100423
  Receipt Date: 20100414
  Transmission Date: 20101027
  Serious: Yes (Hospitalization)
  Sender: FDA-Public Use
  Company Number: US-MYLANLABS-2010S1006346

PATIENT
  Age: 52 Year
  Sex: Male

DRUGS (13)
  1. DIVALPROEX SODIUM EXTENDED RELEASE [Suspect]
     Indication: BIPOLAR DISORDER
     Route: 048
     Dates: start: 20100223, end: 20100312
  2. CLOZAPINE [Concomitant]
     Indication: BIPOLAR DISORDER
     Route: 048
  3. ZYPREXA [Concomitant]
     Indication: BIPOLAR DISORDER
     Route: 048
  4. OXCARBAZEPINE [Concomitant]
     Indication: MOOD SWINGS
     Route: 048
  5. XANAX [Concomitant]
     Indication: ANXIETY
     Route: 048
  6. METOPROLOL TARTRATE [Concomitant]
     Indication: HYPERTENSION
     Route: 048
  7. VESICARE [Concomitant]
     Indication: HYPERTONIC BLADDER
     Route: 048
  8. OMEPRAZOLE [Concomitant]
     Indication: GASTROOESOPHAGEAL REFLUX DISEASE
     Route: 048
  9. PRAVASTATIN SODIUM [Concomitant]
     Indication: BLOOD CHOLESTEROL INCREASED
     Route: 048
  10. ACETAMINOPHEN AND HYDROCODONE BITARTRATE [Concomitant]
     Indication: PAIN
     Dosage: 10MG/500MG Q4-6HR PRN
     Route: 048
  11. ACETAMINOPHEN [Concomitant]
     Indication: PAIN
     Dosage: TID PRN
     Route: 048
  12. VENTOLIN [Concomitant]
     Indication: TOBACCO USER
     Route: 055
  13. ADVAIR DISKUS 100/50 [Concomitant]
     Indication: TOBACCO USER
     Route: 055

REACTIONS (2)
  - INSOMNIA [None]
  - NIGHTMARE [None]
